FAERS Safety Report 9274482 (Version 1)
Quarter: 2013Q2

REPORT INFORMATION
  Report Type: Spontaneous
  Country: US (occurrence: US)
  Receive Date: 20130507
  Receipt Date: 20130507
  Transmission Date: 20140414
  Serious: Yes (Hospitalization, Other)
  Sender: FDA-Public Use
  Company Number: US-AMGEN-USASP2013031247

PATIENT
  Age: 48 Year
  Sex: Female

DRUGS (3)
  1. ENBREL [Suspect]
     Indication: RHEUMATOID ARTHRITIS
     Dosage: 25 MG, QWK
     Dates: start: 20030501
  2. HUMIRA [Concomitant]
     Dosage: UNK
     Dates: start: 2005, end: 2008
  3. REMICADE [Concomitant]
     Dosage: UNK
     Dates: start: 2008, end: 2010

REACTIONS (6)
  - Abdominal operation [Recovered/Resolved]
  - Bladder neck suspension [Recovered/Resolved]
  - Appendicitis [Recovered/Resolved]
  - Headache [Not Recovered/Not Resolved]
  - Condition aggravated [Not Recovered/Not Resolved]
  - Urinary tract infection [Not Recovered/Not Resolved]
